FAERS Safety Report 22519270 (Version 3)
Quarter: 2023Q2

REPORT INFORMATION
  Report Type: Spontaneous
  Country: JP (occurrence: JP)
  Receive Date: 20230605
  Receipt Date: 20230630
  Transmission Date: 20230721
  Serious: Yes (Other)
  Sender: FDA-Public Use
  Company Number: None

PATIENT

DRUGS (8)
  1. BENLYSTA [Suspect]
     Active Substance: BELIMUMAB
     Indication: Systemic lupus erythematosus
     Dosage: 200 MG, WE
     Route: 058
     Dates: start: 20210817, end: 20210921
  2. IGURATIMOD [Suspect]
     Active Substance: IGURATIMOD
     Indication: Arthritis
     Dosage: 25 MG, QD
     Route: 048
     Dates: start: 20210720
  3. PLAQUENIL [Suspect]
     Active Substance: HYDROXYCHLOROQUINE SULFATE
     Indication: Systemic lupus erythematosus
     Dosage: 200 MG, QD
     Route: 048
     Dates: start: 20200714
  4. PREDNISOLONE [Suspect]
     Active Substance: PREDNISOLONE
     Indication: Systemic lupus erythematosus
     Dosage: 15 MG, QD
     Route: 048
     Dates: start: 20200728
  5. PREDNISOLONE [Suspect]
     Active Substance: PREDNISOLONE
     Indication: Interstitial lung disease
     Dosage: 30 MG, QD
     Route: 048
     Dates: start: 2021, end: 2021
  6. PREDNISOLONE [Suspect]
     Active Substance: PREDNISOLONE
     Dosage: UNK UNK, QD
     Route: 048
     Dates: start: 2021
  7. PREDNISOLONE [Suspect]
     Active Substance: PREDNISOLONE
     Dosage: 10 MG, QD
     Route: 048
     Dates: start: 20200728
  8. ACTONEL TABLETS [Concomitant]
     Indication: Osteoporosis
     Dosage: 75 MG, QD
     Route: 048
     Dates: start: 20200818

REACTIONS (3)
  - Interstitial lung disease [Recovering/Resolving]
  - Sjogren^s syndrome [Recovered/Resolved]
  - Condition aggravated [Recovered/Resolved]

NARRATIVE: CASE EVENT DATE: 20210921
